FAERS Safety Report 13452158 (Version 1)
Quarter: 2017Q2

REPORT INFORMATION
  Report Type: Spontaneous
  Country: TW (occurrence: TW)
  Receive Date: 20170418
  Receipt Date: 20170418
  Transmission Date: 20170830
  Serious: Yes (Other)
  Sender: FDA-Public Use
  Company Number: TW-MYLANLABS-2017M1023436

PATIENT

DRUGS (5)
  1. BUPROPION. [Interacting]
     Active Substance: BUPROPION
     Dosage: 300MG DAILY FOR ONE WEEK
     Route: 065
  2. BUPROPION. [Suspect]
     Active Substance: BUPROPION
     Indication: MAJOR DEPRESSION
     Dosage: 150MG DAILY, DOSE WAS INCREASED LATER
     Route: 065
  3. DULOXETINE. [Interacting]
     Active Substance: DULOXETINE
     Indication: MAJOR DEPRESSION
     Dosage: 30MG DAILY, LATER DOSE WAS INCREASED
     Route: 065
  4. DULOXETINE. [Interacting]
     Active Substance: DULOXETINE
     Dosage: 60MG DAILY FOR 10 DAYS
     Route: 065
  5. ESTAZOLAM. [Suspect]
     Active Substance: ESTAZOLAM
     Indication: INSOMNIA
     Route: 065

REACTIONS (2)
  - Delirium [Recovered/Resolved]
  - Drug interaction [Recovered/Resolved]
